FAERS Safety Report 7913241-3 (Version None)
Quarter: 2011Q4

REPORT INFORMATION
  Report Type: 
  Country: None (occurrence: None)
  Receive Date: 20111114
  Receipt Date: 20111110
  Transmission Date: 20120403
  Serious: Yes (Death, Hospitalization)
  Sender: FDA-Public Use
  Company Number: US-PFIZER INC-2011262493

PATIENT
  Sex: Female
  Weight: 100.5 kg

DRUGS (13)
  1. DOXORUBICIN HCL [Suspect]
     Indication: LEIOMYOSARCOMA
     Dosage: 163 MG, UNK
     Route: 042
     Dates: start: 20110914, end: 20110914
  2. RISPERDAL [Concomitant]
     Dosage: UNK
     Dates: start: 20070101
  3. MIRALAX [Concomitant]
     Dosage: UNK
     Dates: start: 20110914
  4. CELEXA [Concomitant]
     Dosage: UNK
     Dates: start: 20070101
  5. ZOFRAN [Concomitant]
     Dosage: UNK
     Dates: start: 20110914
  6. METHADONE [Concomitant]
  7. LORAZEPAM [Concomitant]
     Dosage: UNK
     Dates: start: 20110925
  8. MULTIVITAMINS PLUS IRON /CAN/ [Concomitant]
     Dosage: UNK
     Dates: start: 20100101
  9. PRILOSEC [Concomitant]
     Dosage: UNK
     Dates: start: 20110928
  10. COGENTIN [Concomitant]
     Dosage: UNK
     Dates: start: 20070101
  11. HYDROMORPHONE [Concomitant]
     Dosage: UNK
     Dates: start: 20111005
  12. FENTANYL [Concomitant]
     Dosage: UNK
     Dates: start: 20111005
  13. SCOPOLAMINE [Concomitant]
     Dosage: UNK
     Dates: start: 20110926

REACTIONS (1)
  - SMALL INTESTINAL OBSTRUCTION [None]
